FAERS Safety Report 10394055 (Version 1)
Quarter: 2014Q3

REPORT INFORMATION
  Report Type: Spontaneous
  Country: US (occurrence: None)
  Receive Date: 20140818
  Receipt Date: 20140818
  Transmission Date: 20150326
  Serious: Yes (Other)
  Sender: FDA-Public Use
  Company Number: 2014113127

PATIENT
  Age: 81 Year
  Sex: Male

DRUGS (4)
  1. REVLIMID [Concomitant]
     Active Substance: LENALIDOMIDE
  2. METOPROLOL (METOPROLOL) [Concomitant]
     Active Substance: METOPROLOL
  3. PREDNISOLONE (PREDNISLONE) [Concomitant]
  4. FRAGMIN [Suspect]
     Active Substance: DALTEPARIN SODIUM
     Indication: THROMBOSIS PROPHYLAXIS
     Dates: start: 201105

REACTIONS (7)
  - White blood cell count decreased [None]
  - Anaemia [None]
  - Platelet count decreased [None]
  - Haemorrhage [None]
  - Injection site haemorrhage [None]
  - Off label use [None]
  - Injection site pain [None]

NARRATIVE: CASE EVENT DATE: 201105
